FAERS Safety Report 16900535 (Version 2)
Quarter: 2019Q4

REPORT INFORMATION
  Report Type: Spontaneous
  Country: BR (occurrence: BR)
  Receive Date: 20191009
  Receipt Date: 20191022
  Transmission Date: 20200122
  Serious: Yes (Other)
  Sender: FDA-Public Use
  Company Number: BR-SA-2019SA266195

PATIENT
  Sex: Male
  Weight: 70 kg

DRUGS (4)
  1. LANTUS [Suspect]
     Active Substance: INSULIN GLARGINE
     Indication: TYPE 1 DIABETES MELLITUS
     Dosage: BETWEEN 30 IU AND 35 IU
     Route: 065
     Dates: start: 2004
  2. SIMVASTATIN. [Concomitant]
     Active Substance: SIMVASTATIN
     Indication: BLOOD CHOLESTEROL
     Dosage: 2 DF, HS
     Route: 048
     Dates: start: 2017
  3. NOVORAPID [Concomitant]
     Active Substance: INSULIN ASPART
     Route: 065
  4. HUMALOG [Concomitant]
     Active Substance: INSULIN LISPRO
     Indication: TYPE 1 DIABETES MELLITUS
     Dosage: UNK
     Route: 065
     Dates: start: 2006

REACTIONS (5)
  - Incorrect dose administered by product [Recovered/Resolved]
  - Expired device used [Unknown]
  - Wrong technique in device usage process [Unknown]
  - Diabetic metabolic decompensation [Recovered/Resolved]
  - Device operational issue [Recovered/Resolved]
